FAERS Safety Report 6067553-1 (Version None)
Quarter: 2009Q1

REPORT INFORMATION
  Report Type: 
  Country: None (occurrence: None)
  Receive Date: 20090205
  Receipt Date: 20090128
  Transmission Date: 20090719
  Serious: Yes (Hospitalization)
  Sender: FDA-Public Use
  Company Number: GB-SANOFI-SYNTHELABO-D01200900227

PATIENT
  Sex: Male
  Weight: 98.9 kg

DRUGS (16)
  1. NEXIUM [Concomitant]
     Dates: start: 20080401
  2. LOPERAMIDE HCL [Concomitant]
     Dates: start: 20071119
  3. NULYTELY [Concomitant]
     Dates: start: 20071119
  4. LANSOPRAZOLE [Concomitant]
     Dates: start: 20080128
  5. FYBOGEL [Concomitant]
     Dates: start: 20071119
  6. OMEPRAZOLE [Concomitant]
     Dates: start: 20071203
  7. CYCLIZINE [Concomitant]
     Dates: start: 20071120
  8. SENNA [Concomitant]
  9. TRAMADOL HCL [Concomitant]
  10. GRANISETRON [Concomitant]
     Dates: start: 20071119
  11. DEXAMETHASONE [Concomitant]
     Dates: start: 20071119
  12. DOMPERIDONE [Concomitant]
     Dates: start: 20071119
  13. LEUCOVORIN CALCIUM [Suspect]
     Route: 042
     Dates: start: 20081208, end: 20081208
  14. FLUOROURACIL [Suspect]
     Dosage: 400 MG/M?, IV BOLUS D1+D2 FOLLOWED BY 5-FU 2400 MG/M? OVER 46-HOUR CONTINUOUS INFUSION.
     Route: 042
     Dates: start: 20081208, end: 20081210
  15. OXALIPLATIN [Suspect]
     Route: 042
     Dates: start: 20081208, end: 20081208
  16. SR57746A [Suspect]
     Route: 048
     Dates: start: 20071119, end: 20081218

REACTIONS (1)
  - TYPE 1 DIABETES MELLITUS [None]
